FAERS Safety Report 7051285-7 (Version None)
Quarter: 2010Q4

REPORT INFORMATION
  Report Type: 
  Country: None (occurrence: None)
  Receive Date: 20101019
  Receipt Date: 20101011
  Transmission Date: 20110411
  Serious: Yes (Life-Threatening)
  Sender: FDA-Public Use
  Company Number: FR-GENZYME-CAMP-1001054

PATIENT
  Sex: Male
  Weight: 71 kg

DRUGS (24)
  1. CAMPATH [Suspect]
     Indication: CHRONIC LYMPHOCYTIC LEUKAEMIA
     Dosage: 10 MG, QOD
     Route: 058
     Dates: start: 20100607, end: 20100611
  2. CAMPATH [Suspect]
     Dosage: 30 MG, QOD
     Dates: start: 20100614, end: 20100618
  3. CAMPATH [Suspect]
     Dosage: 30 MG, QOD
     Dates: start: 20100621, end: 20100625
  4. CAMPATH [Suspect]
     Dosage: 30 MG, QOD
     Dates: start: 20100628, end: 20100702
  5. CAMPATH [Suspect]
     Dosage: 30 MG, QOD
     Dates: start: 20100705, end: 20100709
  6. CAMPATH [Suspect]
     Dosage: 30 MG, ONCE
     Dates: start: 20100712, end: 20100712
  7. CAMPATH [Suspect]
     Dosage: 30 MG, ONCE
     Dates: start: 20100714, end: 20100714
  8. CAMPATH [Suspect]
     Dosage: 30 MG, QOD
     Dates: start: 20100802, end: 20100806
  9. CAMPATH [Suspect]
     Dosage: 30 MG, QOD
     Dates: start: 20100809, end: 20100813
  10. CAMPATH [Suspect]
     Dosage: 30 MG, QOD
     Dates: start: 20100818, end: 20100820
  11. CAMPATH [Suspect]
     Dosage: 30 MG, QOD
     Dates: start: 20100823, end: 20100827
  12. ATENOLOL [Concomitant]
     Indication: PRODUCT USED FOR UNKNOWN INDICATION
     Dosage: 25 MG, 2 TABLETS/DAY
     Route: 048
  13. ASPIRIN LYSINE [Concomitant]
     Indication: PRODUCT USED FOR UNKNOWN INDICATION
     Dosage: 75 MG, QD
  14. CLOPIDOGREL [Concomitant]
     Indication: PRODUCT USED FOR UNKNOWN INDICATION
     Dosage: 1 TABLET QD
     Route: 048
  15. PERINDOPRIL [Concomitant]
     Indication: PRODUCT USED FOR UNKNOWN INDICATION
     Dosage: 2.5 MG, QD
  16. EZETIMIBE [Concomitant]
     Indication: PRODUCT USED FOR UNKNOWN INDICATION
     Dosage: 10 MG, UNK
  17. MORPHINE SULFATE [Concomitant]
     Indication: PRODUCT USED FOR UNKNOWN INDICATION
     Dosage: 30 MG (2 TABLETS), QD
     Route: 048
  18. MORPHINE SULFATE [Concomitant]
     Indication: HEADACHE
     Dosage: 10 MG, PRN
  19. LATANOPROST [Concomitant]
     Indication: OCULAR HYPERTENSION
     Dosage: 1 DROP, QD
     Route: 047
     Dates: start: 20100507
  20. TRIMETHOPRIM + SULFAMETHOXAZOLE [Concomitant]
     Indication: PRODUCT USED FOR UNKNOWN INDICATION
  21. VALACYCLOVIR [Concomitant]
     Indication: CHEMOTHERAPY
  22. AERIUS [Concomitant]
     Indication: PREMEDICATION
  23. ACETAMINOPHEN [Concomitant]
     Indication: PREMEDICATION
  24. ZOFRAN [Concomitant]
     Indication: CHEMOTHERAPY
     Dosage: UNK

REACTIONS (2)
  - ANGINA UNSTABLE [None]
  - CORONARY ARTERY DISEASE [None]
